FAERS Safety Report 10523151 (Version 1)
Quarter: 2014Q4

REPORT INFORMATION
  Report Type: Spontaneous
  Country: GB (occurrence: None)
  Receive Date: 20141010
  Receipt Date: 20141010
  Transmission Date: 20150528
  Serious: Yes (Other)
  Sender: FDA-Public Use
  Company Number: 2014CVI00030

PATIENT
  Age: 61 Year
  Sex: Female

DRUGS (7)
  1. PHENYLEPHRINE MINIMS (PHENYLEPHRINE) [Concomitant]
  2. LIGNOCAINE [Concomitant]
     Active Substance: LIDOCAINE HYDROCHLORIDE
  3. ZINACEF (CEFUROXIME) INJECTION [Suspect]
     Active Substance: CEFUROXIME SODIUM
     Dosage: SUBCONJUNCTIVAL
  4. EPINEPHRINE. [Concomitant]
     Active Substance: EPINEPHRINE
  5. PROSMYETHACAINE MINIMS (PROSYMETHACAINE) [Concomitant]
  6. BALANCED SALT SOLUTION (UNSPECIFIED SALTS) [Concomitant]
  7. CYCLOPENTALATE MINIMS (CYCLOPENTOLATE) [Concomitant]

REACTIONS (7)
  - Cystoid macular oedema [None]
  - Anterior chamber inflammation [None]
  - Retinal detachment [None]
  - Vitritis [None]
  - Retinal toxicity [None]
  - Off label use [None]
  - Incorrect route of drug administration [None]
